FAERS Safety Report 7456818-4 (Version None)
Quarter: 2011Q2

REPORT INFORMATION
  Report Type: 
  Country: None (occurrence: None)
  Receive Date: 20110504
  Receipt Date: 20110425
  Transmission Date: 20111010
  Serious: Yes (Hospitalization)
  Sender: FDA-Public Use
  Company Number: US-BIOGENIDEC-2011BI013350

PATIENT
  Age: 72 Year
  Sex: Female

DRUGS (5)
  1. SEROQUEL [Concomitant]
  2. LEXAPRO [Concomitant]
  3. UNKNOWN MEDICATION [Concomitant]
     Indication: HYPERTENSION
  4. ASPIRIN [Concomitant]
  5. AVONEX [Suspect]
     Indication: MULTIPLE SCLEROSIS
     Route: 030
     Dates: start: 20041201

REACTIONS (2)
  - NERVOUS SYSTEM DISORDER [None]
  - TRIGEMINAL NEURALGIA [None]
